FAERS Safety Report 5717541-7 (Version None)
Quarter: 2008Q2

REPORT INFORMATION
  Report Type: 
  Country: None (occurrence: None)
  Receive Date: 20080425
  Receipt Date: 20080417
  Transmission Date: 20081010
  Serious: Yes (Other)
  Sender: FDA-Public Use
  Company Number: BR-JNJFOC-20080405173

PATIENT
  Age: 26 Year
  Sex: Female
  Weight: 61 kg

DRUGS (2)
  1. MICRONOR [Suspect]
     Indication: CONTRACEPTION
     Route: 048
  2. DICLOFENAC SODIUM [Concomitant]

REACTIONS (5)
  - DIZZINESS [None]
  - MEDICATION ERROR [None]
  - MENSTRUAL DISORDER [None]
  - TACHYCARDIA [None]
  - VISUAL DISTURBANCE [None]
